FAERS Safety Report 10897179 (Version 3)
Quarter: 2015Q4

REPORT INFORMATION
  Report Type: Spontaneous
  Country: US (occurrence: US)
  Receive Date: 20150309
  Receipt Date: 20151113
  Transmission Date: 20160304
  Serious: No
  Sender: FDA-Public Use
  Company Number: US-PFIZER INC-2015078651

PATIENT
  Age: 32 Year
  Sex: Male
  Weight: 91 kg

DRUGS (4)
  1. DEPO-TESTOSTERONE [Suspect]
     Active Substance: TESTOSTERONE CYPIONATE
     Indication: BLOOD TESTOSTERONE DECREASED
     Dosage: 0.3 MG, 2X/WEEK
     Route: 030
     Dates: start: 20140909
  2. FISH OIL [Concomitant]
     Active Substance: FISH OIL
  3. DEPO-TESTOSTERONE [Suspect]
     Active Substance: TESTOSTERONE CYPIONATE
     Indication: SECONDARY HYPOGONADISM
     Dosage: 0.2 ML, 2X/WEEK (200 MG/ML)
     Route: 030
     Dates: start: 20140909
  4. DHEA [Concomitant]
     Active Substance: PRASTERONE

REACTIONS (2)
  - Blood testosterone increased [Not Recovered/Not Resolved]
  - Intentional product misuse [Unknown]

NARRATIVE: CASE EVENT DATE: 20150216
